FAERS Safety Report 17680001 (Version 1)
Quarter: 2020Q2

REPORT INFORMATION
  Report Type: Spontaneous
  Country: US (occurrence: US)
  Receive Date: 20200416
  Receipt Date: 20200416
  Transmission Date: 20200714
  Serious: No
  Sender: FDA-Public Use
  Company Number: None

PATIENT
  Age: 86 Year
  Sex: Female

DRUGS (1)
  1. REVLIMID [Suspect]
     Active Substance: LENALIDOMIDE
     Indication: PLASMA CELL MYELOMA
     Route: 048
     Dates: start: 20180720, end: 20180803

REACTIONS (4)
  - Fatigue [None]
  - Myalgia [None]
  - Arthralgia [None]
  - Neuropathy peripheral [None]

NARRATIVE: CASE EVENT DATE: 20180808
